FAERS Safety Report 9138143 (Version 2)
Quarter: 2015Q1

REPORT INFORMATION
  Report Type: Spontaneous
  Country: CA (occurrence: CA)
  Receive Date: 20130304
  Receipt Date: 20150130
  Transmission Date: 20150721
  Serious: Yes (Other)
  Sender: FDA-Public Use
  Company Number: CA-BAUSCH-BL-2012-002250

PATIENT
  Age: 40 Year
  Sex: Male

DRUGS (6)
  1. LOTEMAX [Suspect]
     Active Substance: LOTEPREDNOL ETABONATE
     Route: 047
     Dates: start: 20121122
  2. BSS [Concomitant]
     Active Substance: CALCIUM CHLORIDE\MAGNESIUM CHLORIDE\POTASSIUM CHLORIDE\SODIUM ACETATE\SODIUM CHLORIDE\SODIUM CITRATE
     Indication: PRODUCT USED FOR UNKNOWN INDICATION
     Dates: start: 20121108, end: 20121108
  3. LOTEMAX [Suspect]
     Active Substance: LOTEPREDNOL ETABONATE
     Indication: POSTOPERATIVE CARE
     Dosage: DROPS
     Route: 047
  4. LIPOSIC OPHTHALMIC DROPS [Suspect]
     Active Substance: CARBOMER
     Indication: POSTOPERATIVE CARE
     Dosage: DROP,
     Route: 047
  5. BESIVANCE [Suspect]
     Active Substance: BESIFLOXACIN
     Indication: POSTOPERATIVE CARE
     Dosage: DROPS
     Route: 047
  6. PROPARACAINE [Concomitant]
     Active Substance: PROPARACAINE
     Indication: PRODUCT USED FOR UNKNOWN INDICATION
     Dates: start: 20121108, end: 20121108

REACTIONS (14)
  - Corneal striae [Unknown]
  - Diffuse lamellar keratitis [Recovered/Resolved]
  - Corneal flap complication [Recovered/Resolved]
  - Corneal deposits [Recovered/Resolved]
  - Corneal oedema [Not Recovered/Not Resolved]
  - Eye irritation [Unknown]
  - Foreign body sensation in eyes [Recovered/Resolved]
  - Visual impairment [Unknown]
  - Intentional product use issue [Unknown]
  - Medication residue present [Recovered/Resolved]
  - Corneal infiltrates [Not Recovered/Not Resolved]
  - Corneal opacity [Not Recovered/Not Resolved]
  - Visual acuity tests abnormal [Unknown]
  - Photophobia [Not Recovered/Not Resolved]

NARRATIVE: CASE EVENT DATE: 20121109
